FAERS Safety Report 23447721 (Version 1)
Quarter: 2024Q1

REPORT INFORMATION
  Report Type: Spontaneous
  Country: US (occurrence: US)
  Receive Date: 20240126
  Receipt Date: 20240126
  Transmission Date: 20240409
  Serious: No
  Sender: FDA-Public Use
  Company Number: US-MYLANLABS-2024M1002690

PATIENT
  Sex: Male

DRUGS (1)
  1. BUPRENORPHINE AND NALOXONE SUBLINGUAL FILM [Suspect]
     Active Substance: BUPRENORPHINE HYDROCHLORIDE\NALOXONE HYDROCHLORIDE
     Indication: Restless legs syndrome
     Dosage: UNK
     Route: 065

REACTIONS (2)
  - Off label use [Unknown]
  - Wrong technique in product usage process [Unknown]
